FAERS Safety Report 6739461-1 (Version None)
Quarter: 2010Q2

REPORT INFORMATION
  Report Type: 
  Country: None (occurrence: None)
  Receive Date: 20100525
  Receipt Date: 20100525
  Transmission Date: 20101027
  Serious: No
  Sender: FDA-Public Use
  Company Number: None

PATIENT
  Age: 22 Month
  Sex: Female
  Weight: 10.8863 kg

DRUGS (1)
  1. CONCENTRATED MOTRIN INFANTS DROPS [Suspect]
     Indication: PYREXIA
     Dosage: 1.875 ML Q 6-8 HOURS PO
     Route: 048
     Dates: start: 20100523, end: 20100523

REACTIONS (2)
  - PRODUCT QUALITY ISSUE [None]
  - URTICARIA [None]
